FAERS Safety Report 14239320 (Version 1)
Quarter: 2017Q4

REPORT INFORMATION
  Report Type: Report from Study
  Country: FR (occurrence: FR)
  Receive Date: 20171130
  Receipt Date: 20171130
  Transmission Date: 20180321
  Serious: Yes (Other)
  Sender: FDA-Public Use
  Company Number: PHHY2016FR102543

PATIENT
  Age: 8 Year
  Sex: Male

DRUGS (6)
  1. TRILEPTAL [Concomitant]
     Active Substance: OXCARBAZEPINE
     Indication: EPILEPSY
     Dosage: 360 MG, BID
     Route: 048
     Dates: start: 20120620
  2. URBANYL [Concomitant]
     Active Substance: CLOBAZAM
     Indication: EPILEPSY
     Dosage: 2.5 MG, QD
     Route: 048
     Dates: start: 20131127
  3. EPITOMAX [Concomitant]
     Active Substance: TOPIRAMATE
     Indication: EPILEPSY
     Dosage: 45 MG, BID
     Route: 048
     Dates: start: 20111017
  4. VOTUBIA [Suspect]
     Active Substance: EVEROLIMUS
     Indication: TUBEROUS SCLEROSIS
     Dosage: UNK
     Route: 065
  5. TRILEPTAL [Concomitant]
     Active Substance: OXCARBAZEPINE
     Dosage: 360 MG, BID
     Route: 048
     Dates: start: 20140409
  6. EPITOMAX [Concomitant]
     Active Substance: TOPIRAMATE
     Dosage: 45 MG, QD
     Route: 048
     Dates: start: 20120820

REACTIONS (11)
  - Angina pectoris [Recovered/Resolved]
  - Asthenia [Recovered/Resolved]
  - Iron deficiency [Recovered/Resolved]
  - Ear infection [Recovered/Resolved]
  - Anaemia [Recovered/Resolved]
  - Vomiting [Recovered/Resolved]
  - Abdominal pain [Recovered/Resolved]
  - Ear infection [Recovered/Resolved]
  - Constipation [Recovered/Resolved]
  - Gingivitis [Recovered/Resolved]
  - Oral infection [Recovered/Resolved]

NARRATIVE: CASE EVENT DATE: 20150907
